FAERS Safety Report 4687244-9 (Version None)
Quarter: 2005Q2

REPORT INFORMATION
  Report Type: 
  Country: None (occurrence: None)
  Receive Date: 20050606
  Receipt Date: 20050524
  Transmission Date: 20051028
  Serious: Yes (Hospitalization)
  Sender: FDA-Public Use
  Company Number: 2005080148

PATIENT
  Age: 78 Year
  Sex: Male

DRUGS (8)
  1. CELEBREX [Suspect]
     Indication: SPINAL DISORDER
     Dosage: (2 IN 1 D),ORAL
     Route: 048
     Dates: end: 20050422
  2. PREVISCAN (FLUINDIONE) [Suspect]
     Indication: ATRIAL FLUTTER
     Dosage: 20 MG (20 MG, 1 IN 1 D), ORAL
     Route: 048
  3. LEVOTHYROXINE SODIUM [Concomitant]
  4. BISOPROLOL FUMARATE [Concomitant]
  5. LASIX [Concomitant]
  6. RAMIPRIL [Concomitant]
  7. DOMPERIDONE (DOMPERIDONE) [Concomitant]
  8. LOCOID [Concomitant]

REACTIONS (13)
  - ACTIVATED PARTIAL THROMBOPLASTIN TIME SHORTENED [None]
  - BLOOD UREA INCREASED [None]
  - CONSTIPATION [None]
  - DRUG INTERACTION [None]
  - FAECALOMA [None]
  - HAEMATOCRIT DECREASED [None]
  - HIATUS HERNIA [None]
  - INCONTINENCE [None]
  - INTERNATIONAL NORMALISED RATIO INCREASED [None]
  - MELAENA [None]
  - OESOPHAGITIS [None]
  - PCO2 DECREASED [None]
  - VOMITING [None]
